FAERS Safety Report 4937524-4 (Version None)
Quarter: 2006Q1

REPORT INFORMATION
  Report Type: 
  Country: None (occurrence: None)
  Receive Date: 20060309
  Receipt Date: 20051109
  Transmission Date: 20060701
  Serious: Yes (Hospitalization, Disabling)
  Sender: FDA-Public Use
  Company Number: US-MERCK-0511USA01591

PATIENT
  Age: 65 Year
  Sex: Female
  Weight: 80 kg

DRUGS (10)
  1. VIOXX [Suspect]
     Indication: ARTHRITIS
     Route: 048
     Dates: start: 20001002, end: 20040607
  2. DARVOCET [Concomitant]
     Route: 065
     Dates: start: 20001001
  3. RANITIDINE [Concomitant]
     Route: 065
  4. DIOVAN [Concomitant]
     Indication: HYPERTENSION
     Route: 065
     Dates: start: 20000301
  5. PREVACID [Concomitant]
     Route: 065
  6. ULTRACET [Concomitant]
     Route: 065
     Dates: start: 20020101
  7. DIAZEPAM [Concomitant]
     Route: 065
  8. ZANTAC [Concomitant]
     Route: 065
  9. NAPROXEN [Concomitant]
     Route: 065
     Dates: start: 20000401
  10. [THERAPY UNSPECIFIED] [Concomitant]
     Route: 065

REACTIONS (9)
  - ABDOMINAL PAIN UPPER [None]
  - ACUTE MYOCARDIAL INFARCTION [None]
  - ANGINA PECTORIS [None]
  - BLOOD CHOLESTEROL INCREASED [None]
  - FACE INJURY [None]
  - GLAUCOMA [None]
  - JOINT INJURY [None]
  - LIMB INJURY [None]
  - ROTATOR CUFF SYNDROME [None]
